FAERS Safety Report 23183624 (Version 4)
Quarter: 2024Q3

REPORT INFORMATION
  Report Type: Spontaneous
  Country: US (occurrence: US)
  Receive Date: 20231114
  Receipt Date: 20240919
  Transmission Date: 20241017
  Serious: Yes (Other)
  Sender: PFIZER
  Company Number: US-PFIZER INC-PV202300181382

PATIENT
  Age: 76 Year
  Sex: Female

DRUGS (2)
  1. IBRANCE [Suspect]
     Active Substance: PALBOCICLIB
     Dosage: 1  TABLET BY MOUTH DAILY FOR 21 DAYS FOLLOWED BY A 7 DAY REST PERIOD
     Route: 048
     Dates: start: 20240816
  2. IBRANCE [Suspect]
     Active Substance: PALBOCICLIB
     Dosage: 100 MG

REACTIONS (4)
  - Nerve compression [Unknown]
  - COVID-19 [Unknown]
  - Alopecia [Unknown]
  - White blood cell count decreased [Unknown]
